FAERS Safety Report 6930377-4 (Version None)
Quarter: 2010Q3

REPORT INFORMATION
  Report Type: 
  Country: None (occurrence: None)
  Receive Date: 20100818
  Receipt Date: 20100812
  Transmission Date: 20110219
  Serious: Yes (Life-Threatening)
  Sender: FDA-Public Use
  Company Number: JP-ROCHE-721153

PATIENT
  Sex: Male

DRUGS (11)
  1. TOCILIZUMAB [Suspect]
     Indication: RHEUMATOID ARTHRITIS
     Route: 042
     Dates: start: 20081219, end: 20081219
  2. TOCILIZUMAB [Suspect]
     Route: 042
     Dates: start: 20090109, end: 20090109
  3. TOCILIZUMAB [Suspect]
     Route: 042
     Dates: start: 20090223, end: 20090223
  4. TOCILIZUMAB [Suspect]
     Route: 042
     Dates: start: 20090323, end: 20090323
  5. TOCILIZUMAB [Suspect]
     Route: 042
     Dates: start: 20090420, end: 20090420
  6. TOCILIZUMAB [Suspect]
     Route: 042
     Dates: start: 20090518, end: 20090518
  7. TOCILIZUMAB [Suspect]
     Route: 042
     Dates: start: 20090622, end: 20100317
  8. RHEUMATREX [Concomitant]
     Route: 048
     Dates: start: 20081020
  9. CELCOX [Concomitant]
     Route: 048
     Dates: start: 20081016
  10. SELBEX [Concomitant]
     Route: 048
     Dates: start: 20081016
  11. FOLIAMIN [Concomitant]
     Dosage: DOSE FORM: PERORAL AGENT
     Route: 048
     Dates: start: 20081020

REACTIONS (2)
  - LEUKAEMIA [None]
  - PLATELET COUNT DECREASED [None]
